FAERS Safety Report 25963413 (Version 1)
Quarter: 2025Q4

REPORT INFORMATION
  Report Type: Spontaneous
  Country: US (occurrence: US)
  Receive Date: 20251027
  Receipt Date: 20251027
  Transmission Date: 20260117
  Serious: No
  Sender: MYLAN
  Company Number: US-MYLANLABS-2025M1088910

PATIENT
  Sex: Male

DRUGS (4)
  1. LYRICA [Suspect]
     Active Substance: PREGABALIN
     Indication: Neuropathy peripheral
     Dosage: 150 MILLIGRAM, QD
     Dates: start: 2025
  2. LYRICA [Suspect]
     Active Substance: PREGABALIN
     Dosage: 300 MILLIGRAM, QD
     Dates: start: 2025
  3. LYRICA [Suspect]
     Active Substance: PREGABALIN
     Dosage: 150 MILLIGRAM, QD
     Dates: start: 2025
  4. IMMUNE GLOBULIN NOS [Suspect]
     Active Substance: IMMUNE GLOBULIN NOS
     Indication: Neuropathy peripheral
     Dosage: UNK (TRIPLE DOSE BACK TO BACK)

REACTIONS (3)
  - Rash [Recovered/Resolved]
  - Vision blurred [Recovered/Resolved]
  - Off label use [Unknown]

NARRATIVE: CASE EVENT DATE: 20250101
